FAERS Safety Report 14046667 (Version 1)
Quarter: 2017Q4

REPORT INFORMATION
  Report Type: Spontaneous
  Country: US (occurrence: US)
  Receive Date: 20171005
  Receipt Date: 20171005
  Transmission Date: 20180321
  Serious: Yes (Hospitalization)
  Sender: FDA-Public Use
  Company Number: US-INDIVIOR LIMITED-INDV-102203-2017

PATIENT
  Sex: Female

DRUGS (1)
  1. BUPRENORPHINE/NALOXONE BRAND UNSPECIFIED [Suspect]
     Active Substance: BUPRENORPHINE\NALOXONE
     Indication: DRUG USE DISORDER
     Dosage: 16MG, UNK
     Route: 060

REACTIONS (2)
  - Drug dependence [Not Recovered/Not Resolved]
  - Abdominal discomfort [Not Recovered/Not Resolved]
